FAERS Safety Report 16959866 (Version 1)
Quarter: 2019Q4

REPORT INFORMATION
  Report Type: Report from Study
  Country: CA (occurrence: CA)
  Receive Date: 20191025
  Receipt Date: 20191025
  Transmission Date: 20200122
  Serious: Yes (Death, Hospitalization, Other)
  Sender: FDA-Public Use
  Company Number: CA-ORION CORPORATION ORION PHARMA-TREX2019-4636

PATIENT
  Age: 62 Year
  Sex: Female

DRUGS (11)
  1. METHOTREXATE (TRADE NAME UNKNOWN) [Suspect]
     Active Substance: METHOTREXATE
     Indication: PRODUCT USED FOR UNKNOWN INDICATION
     Route: 065
  2. ACTEMRA [Suspect]
     Active Substance: TOCILIZUMAB
     Route: 042
  3. ACTEMRA [Suspect]
     Active Substance: TOCILIZUMAB
     Route: 042
  4. INSULIN [Concomitant]
     Active Substance: INSULIN NOS
     Route: 065
  5. INSULIN LISPRO-INSULIN LISPRO PROTAMINE SUSPENSION [Concomitant]
     Route: 065
  6. ROSUVASTATIN CALCIUM. [Concomitant]
     Active Substance: ROSUVASTATIN CALCIUM
     Route: 065
  7. ACTEMRA [Suspect]
     Active Substance: TOCILIZUMAB
     Route: 058
  8. HYDROMORPHONE [Concomitant]
     Active Substance: HYDROMORPHONE
     Route: 065
  9. ACTEMRA [Suspect]
     Active Substance: TOCILIZUMAB
     Indication: RHEUMATOID ARTHRITIS
     Route: 042
  10. RAMIPRIL. [Concomitant]
     Active Substance: RAMIPRIL
     Route: 065
  11. DICLOFENAC [Suspect]
     Active Substance: DICLOFENAC
     Indication: PRODUCT USED FOR UNKNOWN INDICATION
     Route: 065

REACTIONS (28)
  - Bronchitis [Fatal]
  - Hepatic enzyme increased [Fatal]
  - Liver disorder [Fatal]
  - Musculoskeletal stiffness [Fatal]
  - Nasopharyngitis [Fatal]
  - Pain in extremity [Fatal]
  - Pharyngitis [Fatal]
  - Rheumatoid arthritis [Fatal]
  - Tremor [Fatal]
  - Drug ineffective [Fatal]
  - Joint swelling [Fatal]
  - Peripheral swelling [Fatal]
  - Vomiting [Fatal]
  - Poor venous access [Fatal]
  - Seizure [Fatal]
  - Ear infection [Fatal]
  - Gait disturbance [Fatal]
  - Hepatic steatosis [Fatal]
  - Liver injury [Fatal]
  - Oedema peripheral [Fatal]
  - Pruritus [Fatal]
  - Death [Fatal]
  - Loss of personal independence in daily activities [Fatal]
  - Noninfective encephalitis [Fatal]
  - Therapeutic response decreased [Fatal]
  - Arthralgia [Fatal]
  - Dementia [Fatal]
  - Swelling [Fatal]
